FAERS Safety Report 4940851-8 (Version None)
Quarter: 2006Q1

REPORT INFORMATION
  Report Type: 
  Country: None (occurrence: None)
  Receive Date: 20060307
  Receipt Date: 20060220
  Transmission Date: 20060701
  Serious: Yes (Hospitalization, Other)
  Sender: FDA-Public Use
  Company Number: 2006AL000496

PATIENT
  Age: 30 Year
  Sex: Female

DRUGS (2)
  1. CARBAMAZEPINE [Suspect]
     Dosage: 4 GM; PO
     Route: 048
  2. ALPRAZOLAM TABLETS USP, 2 MG (PUREPAC) (ALPRAZOLAM TABLETS USP, 2 MG ( [Suspect]
     Dosage: 40 MG; PO
     Route: 048

REACTIONS (6)
  - BEZOAR [None]
  - DRUG TOXICITY [None]
  - SMALL INTESTINAL OBSTRUCTION [None]
  - SOMNOLENCE [None]
  - SUICIDE ATTEMPT [None]
  - URINARY TRACT INFECTION [None]
